FAERS Safety Report 5276579-7 (Version None)
Quarter: 2007Q1

REPORT INFORMATION
  Report Type: 
  Country: None (occurrence: None)
  Receive Date: 20070321
  Receipt Date: 20061004
  Transmission Date: 20070707
  Serious: Yes (Hospitalization)
  Sender: FDA-Public Use
  Company Number: 236680K06USA

PATIENT
  Age: 32 Year
  Sex: Female
  Weight: 45.8133 kg

DRUGS (1)
  1. REBIF [Suspect]
     Indication: MULTIPLE SCLEROSIS
     Dosage: 44 MCG, 3 IN 1 WEEKS, SUBCUTANEOUS
     Route: 058
     Dates: start: 20050509

REACTIONS (2)
  - DEHYDRATION [None]
  - GASTROENTERITIS SALMONELLA [None]
